FAERS Safety Report 4568420-2 (Version None)
Quarter: 2005Q1

REPORT INFORMATION
  Report Type: 
  Country: None (occurrence: None)
  Receive Date: 20050131
  Receipt Date: 20050117
  Transmission Date: 20050727
  Serious: Yes (Disabling, Other)
  Sender: FDA-Public Use
  Company Number: 2005013892

PATIENT
  Age: 35 Year
  Sex: Female

DRUGS (3)
  1. ZOLOFT [Suspect]
     Indication: ANXIETY
     Dosage: ORAL
     Route: 048
     Dates: start: 20010601, end: 20041201
  2. ACETAMINOPHEN [Concomitant]
  3. NAPROXEN [Concomitant]

REACTIONS (19)
  - ANOREXIA [None]
  - BACK PAIN [None]
  - BENIGN INTRACRANIAL HYPERTENSION [None]
  - EYE SWELLING [None]
  - HAEMORRHAGE [None]
  - HEADACHE [None]
  - HYPERAEMIA [None]
  - IMPAIRED WORK ABILITY [None]
  - MUSCLE SPASMS [None]
  - MUSCLE TIGHTNESS [None]
  - OEDEMA [None]
  - PAIN [None]
  - PARAESTHESIA [None]
  - PUPILLARY DISORDER [None]
  - SYNCOPE [None]
  - VISION BLURRED [None]
  - VISUAL DISTURBANCE [None]
  - VISUAL FIELD DEFECT [None]
  - WEIGHT DECREASED [None]
